FAERS Safety Report 15857770 (Version 1)
Quarter: 2019Q1

REPORT INFORMATION
  Report Type: Spontaneous
  Country: US (occurrence: US)
  Receive Date: 20190123
  Receipt Date: 20190123
  Transmission Date: 20190417
  Serious: Yes (Hospitalization)
  Sender: FDA-Public Use
  Company Number: US-PFIZER INC-2019025532

PATIENT
  Age: 76 Year
  Sex: Male
  Weight: 104.31 kg

DRUGS (2)
  1. TAMSULOSIN [Concomitant]
     Active Substance: TAMSULOSIN
     Dosage: 0.4 MG, 1X/DAY
  2. TOVIAZ [Suspect]
     Active Substance: FESOTERODINE FUMARATE
     Dosage: 8 MG, 1X/DAY

REACTIONS (4)
  - Discomfort [Unknown]
  - Prostatic disorder [Unknown]
  - Urinary tract infection [Unknown]
  - Catheter site infection [Unknown]
